FAERS Safety Report 5236550-8 (Version None)
Quarter: 2007Q1

REPORT INFORMATION
  Report Type: 
  Country: None (occurrence: None)
  Receive Date: 20070208
  Receipt Date: 20070130
  Transmission Date: 20070707
  Serious: Yes (Hospitalization)
  Sender: FDA-Public Use
  Company Number: 163-20785-07010562

PATIENT
  Age: 61 Year
  Sex: Female
  Weight: 83.4619 kg

DRUGS (2)
  1. THALOMID [Suspect]
     Indication: MULTIPLE MYELOMA
     Dosage: 50-200 MG, 1 IN 1 D, ORAL; 400 MG, 8 IN 1 D, ORAL
     Route: 048
     Dates: start: 20060119, end: 20060701
  2. THALOMID [Suspect]
     Indication: MULTIPLE MYELOMA
     Dosage: 50-200 MG, 1 IN 1 D, ORAL; 400 MG, 8 IN 1 D, ORAL
     Route: 048
     Dates: start: 20040629

REACTIONS (4)
  - GASTRITIS [None]
  - HIATUS HERNIA [None]
  - OESOPHAGITIS [None]
  - PANCREATITIS [None]
